FAERS Safety Report 7805059-7 (Version None)
Quarter: 2011Q4

REPORT INFORMATION
  Report Type: 
  Country: None (occurrence: None)
  Receive Date: 20111010
  Receipt Date: 20110930
  Transmission Date: 20120403
  Serious: Yes (Other)
  Sender: FDA-Public Use
  Company Number: JP-GLAXOSMITHKLINE-B0744511A

PATIENT
  Sex: Female
  Weight: 49 kg

DRUGS (14)
  1. ALKERAN [Suspect]
     Indication: STEM CELL TRANSPLANT
     Dosage: 130MGM2 PER DAY
     Route: 042
     Dates: start: 20101014, end: 20101014
  2. BACTRIM [Concomitant]
     Dosage: 2IUAX PER DAY
     Route: 048
     Dates: start: 20101008, end: 20101014
  3. EMEND [Concomitant]
     Dosage: 80MG PER DAY
     Route: 048
     Dates: start: 20101012, end: 20101013
  4. ETOPOSIDE [Suspect]
     Indication: STEM CELL TRANSPLANT
     Dosage: 500MGM2 PER DAY
     Route: 042
     Dates: start: 20101011, end: 20101013
  5. CYCLOPHOSPHAMIDE [Suspect]
     Indication: STEM CELL TRANSPLANT
     Dosage: 60MGK PER DAY
     Route: 042
     Dates: start: 20101011, end: 20101012
  6. BIO THREE [Concomitant]
     Dosage: 3IUAX PER DAY
     Route: 048
     Dates: start: 20101008
  7. URSO 250 [Concomitant]
     Dosage: 600MG PER DAY
     Route: 048
     Dates: start: 20101008, end: 20101129
  8. RITUXAN [Suspect]
     Indication: STEM CELL TRANSPLANT
     Dosage: 375MGM2 PER DAY
     Route: 042
     Dates: start: 20101010, end: 20101010
  9. BACTRIM [Concomitant]
     Route: 048
     Dates: start: 20101008, end: 20101014
  10. FLUCONAZOLE [Concomitant]
     Dosage: 200MG PER DAY
     Route: 048
     Dates: start: 20101008
  11. EMEND [Concomitant]
     Dosage: 125MG PER DAY
     Route: 048
     Dates: start: 20101011, end: 20101011
  12. FAMOTIDINE [Concomitant]
     Dosage: 40MG PER DAY
     Route: 048
     Dates: start: 20101011, end: 20101108
  13. MUCOSTA [Concomitant]
     Dosage: 300MG PER DAY
     Route: 048
     Dates: start: 20101008
  14. CIPROFLOXACIN HCL [Concomitant]
     Dosage: 600MG PER DAY
     Route: 048
     Dates: start: 20101011, end: 20101018

REACTIONS (8)
  - HYPOKALAEMIA [None]
  - C-REACTIVE PROTEIN INCREASED [None]
  - CYTOMEGALOVIRUS VIRAEMIA [None]
  - RED BLOOD CELLS URINE POSITIVE [None]
  - BLOOD IMMUNOGLOBULIN G DECREASED [None]
  - FEBRILE NEUTROPENIA [None]
  - DIARRHOEA [None]
  - VIRAL HAEMORRHAGIC CYSTITIS [None]
